FAERS Safety Report 7588779-1 (Version None)
Quarter: 2011Q3

REPORT INFORMATION
  Report Type: 
  Country: None (occurrence: None)
  Receive Date: 20110705
  Receipt Date: 20110622
  Transmission Date: 20111222
  Serious: Yes (Other)
  Sender: FDA-Public Use
  Company Number: CA-ELI_LILLY_AND_COMPANY-CA201106006663

PATIENT
  Age: 50 Year
  Sex: Male

DRUGS (4)
  1. CALCIUM CARBONATE [Concomitant]
     Dosage: 1000 MG, QD
  2. VITAMIN D [Concomitant]
     Dosage: 2000 IU, QD
  3. VITAMIN B-12 [Concomitant]
     Dosage: 500 UG, 3/W
  4. FORTEO [Suspect]
     Indication: OSTEOPOROSIS
     Dosage: 20 UG, QD
     Route: 058
     Dates: start: 20110325

REACTIONS (1)
  - BLOOD CREATINE PHOSPHOKINASE INCREASED [None]
